FAERS Safety Report 4918638-1 (Version None)
Quarter: 2006Q1

REPORT INFORMATION
  Report Type: 
  Country: None (occurrence: None)
  Receive Date: 20060222
  Receipt Date: 20060209
  Transmission Date: 20060701
  Serious: Yes (Other)
  Sender: FDA-Public Use
  Company Number: US-AMGEN-US168283

PATIENT
  Sex: Female

DRUGS (11)
  1. ARANESP [Suspect]
     Indication: RENAL FAILURE CHRONIC
     Dates: start: 20050801
  2. PROCRIT [Suspect]
     Indication: RENAL FAILURE CHRONIC
  3. CYCLOSPORINE [Concomitant]
  4. CELLCEPT [Concomitant]
  5. NORVASC [Concomitant]
  6. PREDNISONE [Concomitant]
  7. TOPROL-XL [Concomitant]
  8. LIPITOR [Concomitant]
  9. LASIX [Concomitant]
  10. STARLIX [Concomitant]
  11. AVANDIA [Concomitant]

REACTIONS (1)
  - APLASIA PURE RED CELL [None]
